FAERS Safety Report 8359607-1 (Version None)
Quarter: 2012Q2

REPORT INFORMATION
  Report Type: 
  Country: None (occurrence: None)
  Receive Date: 20120514
  Receipt Date: 20120514
  Transmission Date: 20120825
  Serious: Yes (Death)
  Sender: FDA-Public Use
  Company Number: None

PATIENT
  Age: 80 Year
  Sex: Male

DRUGS (2)
  1. MYCOPHENOLATE 250MG CAPSULES ACCORD HEALTHCARE [Suspect]
     Dosage: 500MG BID PO
     Route: 048
     Dates: start: 20120127, end: 20120328
  2. TACROLIMUS [Suspect]
     Dosage: 0.5MG QAM PO
     Route: 048
     Dates: start: 20120127, end: 20120328

REACTIONS (1)
  - DEATH [None]
